FAERS Safety Report 13495112 (Version 16)
Quarter: 2017Q4

REPORT INFORMATION
  Report Type: Report from Study
  Country: US (occurrence: US)
  Receive Date: 20170428
  Receipt Date: 20171026
  Transmission Date: 20180320
  Serious: Yes (Hospitalization, Other)
  Sender: FDA-Public Use
  Company Number: US-GILEAD-2017-0269909

PATIENT
  Age: 66 Year
  Sex: Female

DRUGS (8)
  1. DILTIAZEM. [Concomitant]
     Active Substance: DILTIAZEM
  2. AMBRISENTAN [Suspect]
     Active Substance: AMBRISENTAN
     Indication: PRODUCT USED FOR UNKNOWN INDICATION
     Dosage: 10 MG, QD
     Route: 065
     Dates: start: 20150128
  3. ELIQUIS [Concomitant]
     Active Substance: APIXABAN
  4. ADCIRCA [Concomitant]
     Active Substance: TADALAFIL
  5. ADEMPAS [Concomitant]
     Active Substance: RIOCIGUAT
  6. ONDANSETRON [Concomitant]
     Active Substance: ONDANSETRON
  7. ORENITRAM [Concomitant]
     Active Substance: TREPROSTINIL
  8. REMODULIN [Concomitant]
     Active Substance: TREPROSTINIL

REACTIONS (19)
  - Red blood cell count decreased [Not Recovered/Not Resolved]
  - Cold sweat [Unknown]
  - Vomiting [Unknown]
  - Right ventricular systolic pressure increased [Not Recovered/Not Resolved]
  - Vomiting [Not Recovered/Not Resolved]
  - Dyspnoea [Unknown]
  - Nausea [Not Recovered/Not Resolved]
  - Diarrhoea [Not Recovered/Not Resolved]
  - Flushing [Not Recovered/Not Resolved]
  - Chest discomfort [Unknown]
  - Atrial fibrillation [Unknown]
  - Tachycardia [Unknown]
  - Decreased appetite [Not Recovered/Not Resolved]
  - Helicobacter infection [Not Recovered/Not Resolved]
  - Anaemia [Unknown]
  - Heart rate increased [Unknown]
  - Retching [Not Recovered/Not Resolved]
  - Oedema peripheral [Unknown]
  - Malaise [Not Recovered/Not Resolved]
